FAERS Safety Report 4705838-9 (Version None)
Quarter: 2005Q2

REPORT INFORMATION
  Report Type: 
  Country: None (occurrence: None)
  Receive Date: 20050629
  Receipt Date: 20050509
  Transmission Date: 20051028
  Serious: Yes (Hospitalization)
  Sender: FDA-Public Use
  Company Number: 05P-163-0300134-00

PATIENT
  Age: 61 Year
  Sex: Male
  Weight: 95 kg

DRUGS (9)
  1. HUMIRA [Suspect]
     Indication: RHEUMATOID ARTHRITIS
     Dosage: 40 MG, 1 IN 2 WK, SUBCUTANEOUS
     Route: 058
     Dates: start: 20040301, end: 20050401
  2. HUMIRA [Suspect]
     Indication: RHEUMATOID ARTHRITIS
     Dosage: 40 MG, 1 IN 2 WK, SUBCUTANEOUS
     Route: 058
     Dates: start: 20050508
  3. METHYLPREDNISOLONE [Concomitant]
  4. ESOMEPRAZOLE [Concomitant]
  5. OXYCOCET [Concomitant]
  6. CALCITONIN-SALMON [Concomitant]
  7. LORAZEPAM [Concomitant]
  8. PROCHLORPERAZINE EDISYLATE [Concomitant]
  9. POTASSIUM CHLORIDE [Concomitant]

REACTIONS (3)
  - CARDIAC FAILURE CONGESTIVE [None]
  - SINUSITIS [None]
  - THROMBOSIS [None]
